FAERS Safety Report 25543541 (Version 1)
Quarter: 2025Q3

REPORT INFORMATION
  Report Type: Spontaneous
  Country: EU (occurrence: EU)
  Receive Date: 20250711
  Receipt Date: 20250711
  Transmission Date: 20251021
  Serious: Yes (Other)
  Sender: RANBAXY
  Company Number: EU-SUN PHARMACEUTICAL INDUSTRIES LTD-2025RR-516467

PATIENT
  Age: 68 Year
  Sex: Female

DRUGS (3)
  1. IMATINIB [Suspect]
     Active Substance: IMATINIB
     Indication: Gastrointestinal stromal tumour
     Dosage: 400 MILLIGRAM, QD
     Route: 065
  2. PREDNISOLONE [Suspect]
     Active Substance: PREDNISOLONE
     Indication: Dermatitis exfoliative
     Dosage: 0.5 MG/KG
     Route: 048
  3. SUNITINIB [Suspect]
     Active Substance: SUNITINIB
     Indication: Gastrointestinal stromal tumour
     Route: 048

REACTIONS (4)
  - Stomatitis [Recovering/Resolving]
  - Disease progression [Recovering/Resolving]
  - Therapeutic product effect incomplete [Unknown]
  - Type IV hypersensitivity reaction [Recovered/Resolved]
